FAERS Safety Report 7847084 (Version 3)
Quarter: 2013Q4

REPORT INFORMATION
  Report Type: Spontaneous
  Country: US (occurrence: US)
  Receive Date: 20110309
  Receipt Date: 20131210
  Transmission Date: 20140711
  Serious: Yes (Other)
  Sender: FDA-Public Use
  Company Number: US-BAYER-2011-020915

PATIENT
  Age: 24 Year
  Sex: Female
  Weight: 90.7 kg

DRUGS (4)
  1. YASMIN [Suspect]
     Indication: ORAL CONTRACEPTION
     Dosage: UNK
     Route: 048
     Dates: start: 20020104
  2. IBUPROFEN [Concomitant]
  3. LORAZEPAM [Concomitant]
     Dosage: 0.5MG, TAKE 1 TID (THREE TIMES DAILY) PRN (AS NEEDED)
     Route: 048
  4. CARAFATE [Concomitant]
     Dosage: I GM/10 ML, UNK

REACTIONS (6)
  - Gallbladder disorder [None]
  - Cholecystitis chronic [None]
  - Fatigue [None]
  - Nausea [None]
  - Vomiting [None]
  - Dyspepsia [None]
